FAERS Safety Report 5886940-5 (Version None)
Quarter: 2008Q3

REPORT INFORMATION
  Report Type: 
  Country: None (occurrence: None)
  Receive Date: 20080917
  Receipt Date: 20080903
  Transmission Date: 20090109
  Serious: Yes (Hospitalization, Other)
  Sender: FDA-Public Use
  Company Number: HQWYE411526JUL06

PATIENT
  Sex: Female
  Weight: 59 kg

DRUGS (7)
  1. RAPAMUNE [Suspect]
     Indication: PROPHYLAXIS AGAINST TRANSPLANT REJECTION
     Dosage: 6 MG INITIALLY
     Route: 048
     Dates: start: 20060613, end: 20060101
  2. RAPAMUNE [Suspect]
     Route: 048
     Dates: start: 20060101, end: 20060101
  3. RAPAMUNE [Suspect]
     Route: 048
     Dates: start: 20060101, end: 20060824
  4. PREDNISONE TAB [Concomitant]
     Indication: PROPHYLAXIS AGAINST TRANSPLANT REJECTION
     Dosage: UNKNOWN
     Dates: start: 20060614
  5. SANDIMMUNE [Concomitant]
     Indication: PROPHYLAXIS AGAINST TRANSPLANT REJECTION
     Dosage: UNKNOWN
     Dates: start: 20060614, end: 20060731
  6. SANDIMMUNE [Concomitant]
     Route: 048
     Dates: start: 20060801, end: 20060821
  7. SANDIMMUNE [Concomitant]
     Route: 048
     Dates: start: 20060822, end: 20060824

REACTIONS (3)
  - OEDEMA [None]
  - RENAL TUBULAR NECROSIS [None]
  - TRANSPLANT REJECTION [None]
